FAERS Safety Report 12545531 (Version 2)
Quarter: 2016Q3

REPORT INFORMATION
  Report Type: Other
  Country: US (occurrence: US)
  Receive Date: 20160711
  Receipt Date: 20160801
  Transmission Date: 20161109
  Serious: No
  Sender: FDA-Public Use
  Company Number: US-SHIRE-US201608570

PATIENT
  Age: 20 Year
  Sex: Female

DRUGS (1)
  1. VYVANSE [Suspect]
     Active Substance: LISDEXAMFETAMINE DIMESYLATE
     Indication: PRODUCT USED FOR UNKNOWN INDICATION
     Dosage: 20 MG, 2X/DAY:BID (ONCE IN THE MORNING AND ONCE IN THE EVENING)
     Route: 048

REACTIONS (2)
  - Inappropriate schedule of drug administration [Not Recovered/Not Resolved]
  - No adverse event [Not Recovered/Not Resolved]
